FAERS Safety Report 12703998 (Version 2)
Quarter: 2016Q4

REPORT INFORMATION
  Report Type: Spontaneous
  Country: FR (occurrence: FR)
  Receive Date: 20160831
  Receipt Date: 20161115
  Transmission Date: 20170207
  Serious: Yes (Hospitalization)
  Sender: FDA-Public Use
  Company Number: FR-TEVA-686817ROM

PATIENT
  Age: 69 Year
  Sex: Male

DRUGS (4)
  1. DACARBAZINE MEDAC [Suspect]
     Active Substance: DACARBAZINE
     Indication: HODGKIN^S DISEASE
     Dosage: 630 MILLIGRAM DAILY;
     Route: 042
     Dates: start: 20151211, end: 20160705
  2. DOXORUBICINE TEVA [Suspect]
     Active Substance: DOXORUBICIN
     Indication: HODGKIN^S DISEASE
     Dosage: 42 MILLIGRAM DAILY;
     Route: 042
     Dates: start: 20151211, end: 20160705
  3. VELBE [Suspect]
     Active Substance: VINBLASTINE SULFATE
     Indication: HODGKIN^S DISEASE
     Dosage: 10 MILLIGRAM DAILY;
     Route: 042
     Dates: start: 20151211, end: 20160705
  4. BLEOMYCIN [Suspect]
     Active Substance: BLEOMYCIN SULFATE
     Indication: HODGKIN^S DISEASE
     Dosage: 16.8 MILLIGRAM DAILY;
     Route: 042
     Dates: start: 20151211, end: 20160329

REACTIONS (1)
  - Interstitial lung disease [Recovering/Resolving]

NARRATIVE: CASE EVENT DATE: 20160719
